FAERS Safety Report 15091959 (Version 2)
Quarter: 2018Q3

REPORT INFORMATION
  Report Type: Report from Study
  Country: US (occurrence: US)
  Receive Date: 20180629
  Receipt Date: 20180704
  Transmission Date: 20181010
  Serious: Yes (Hospitalization)
  Sender: FDA-Public Use
  Company Number: US-UCBSA-2017052952

PATIENT
  Age: 51 Year
  Sex: Male
  Weight: 61.7 kg

DRUGS (3)
  1. KEPPRA [Suspect]
     Active Substance: LEVETIRACETAM
     Indication: PRODUCT USED FOR UNKNOWN INDICATION
     Dosage: UNK
  2. LAMICTAL [Concomitant]
     Active Substance: LAMOTRIGINE
     Indication: SEIZURE
     Dosage: 150 MG, 225 MG
  3. LACOSAMIDE. [Suspect]
     Active Substance: LACOSAMIDE
     Indication: PARTIAL SEIZURES
     Dosage: 50 MG, 100 MG

REACTIONS (3)
  - Petit mal epilepsy [Recovered/Resolved]
  - Drug hypersensitivity [Unknown]
  - Snake bite [Recovered/Resolved]

NARRATIVE: CASE EVENT DATE: 20170919
